FAERS Safety Report 17532094 (Version 2)
Quarter: 2021Q1

REPORT INFORMATION
  Report Type: Spontaneous
  Country: US (occurrence: US)
  Receive Date: 20200311
  Receipt Date: 20210223
  Transmission Date: 20210419
  Serious: Yes (Other)
  Sender: FDA-Public Use
  Company Number: US-BAUSCH-BL-2020-006967

PATIENT
  Age: 65 Year
  Sex: Female

DRUGS (1)
  1. TRULANCE [Suspect]
     Active Substance: PLECANATIDE
     Indication: CONSTIPATION
     Dosage: RECEIVED 2 DOSES
     Route: 048
     Dates: start: 20200207, end: 20200208

REACTIONS (5)
  - Oropharyngeal blistering [Unknown]
  - Dysphonia [Not Recovered/Not Resolved]
  - Throat tightness [Unknown]
  - Viral infection [Unknown]
  - Oropharyngeal pain [Unknown]

NARRATIVE: CASE EVENT DATE: 202002
